FAERS Safety Report 5298868-2 (Version None)
Quarter: 2007Q2

REPORT INFORMATION
  Report Type: 
  Country: None (occurrence: None)
  Receive Date: 20070410
  Receipt Date: 20070329
  Transmission Date: 20071010
  Serious: Yes (Hospitalization)
  Sender: FDA-Public Use
  Company Number: 2007313453

PATIENT
  Sex: Female

DRUGS (1)
  1. BENADRYL [Suspect]
     Indication: RASH
     Dosage: ORAL
     Route: 048
     Dates: start: 19880101, end: 19880101

REACTIONS (1)
  - ANAPHYLACTIC SHOCK [None]
